FAERS Safety Report 8211743-6 (Version None)
Quarter: 2012Q1

REPORT INFORMATION
  Report Type: 
  Country: None (occurrence: None)
  Receive Date: 20120315
  Receipt Date: 20120307
  Transmission Date: 20120608
  Serious: Yes (Life-Threatening, Hospitalization, Other)
  Sender: FDA-Public Use
  Company Number: US-JNJFOC-20100701705

PATIENT
  Sex: Female

DRUGS (1)
  1. NUCYNTA [Suspect]
     Indication: BACK PAIN
     Route: 065
     Dates: start: 20090713, end: 20090713

REACTIONS (5)
  - HEART RATE INCREASED [None]
  - PALPITATIONS [None]
  - BLOOD PRESSURE INCREASED [None]
  - CARDIAC FIBRILLATION [None]
  - DRUG INEFFECTIVE [None]
